FAERS Safety Report 9705906 (Version 2)
Quarter: 2013Q4

REPORT INFORMATION
  Report Type: Spontaneous
  Country: US (occurrence: US)
  Receive Date: 20131122
  Receipt Date: 20131122
  Transmission Date: 20140711
  Serious: No
  Sender: FDA-Public Use
  Company Number: US-GALDERMA-US13000657

PATIENT
  Age: 66 Year
  Sex: Female

DRUGS (1)
  1. CLOBEX (CLOBETASOL PROPIONATE) SPRAY, 0.05% [Suspect]
     Indication: PSORIASIS
     Route: 061
     Dates: start: 201302, end: 20130225

REACTIONS (2)
  - Pain of skin [Recovered/Resolved]
  - Skin burning sensation [Recovered/Resolved]
